FAERS Safety Report 7321229-9 (Version None)
Quarter: 2011Q1

REPORT INFORMATION
  Report Type: 
  Country: None (occurrence: None)
  Receive Date: 20110228
  Receipt Date: 20110201
  Transmission Date: 20110831
  Serious: No
  Sender: FDA-Public Use
  Company Number: US-B.I. PHARMACEUTICALS,INC./RIDGEFIELD-2011-BP-03168BP

PATIENT
  Sex: Male

DRUGS (8)
  1. DIOVAN [Concomitant]
     Indication: HYPERTENSION
     Dosage: 180 MG
     Route: 048
  2. FINASTERIDE [Concomitant]
     Indication: PROSTATIC DISORDER
     Dosage: 5 MG
     Route: 048
  3. TRICOR [Concomitant]
     Indication: BLOOD TRIGLYCERIDES INCREASED
     Dosage: 145 MG
     Route: 048
  4. ASA [Concomitant]
     Indication: PROPHYLAXIS
     Dosage: 81 MG
     Route: 048
  5. VIAGRA [Concomitant]
     Indication: ERECTILE DYSFUNCTION
     Dosage: 100 MG
     Route: 048
  6. COMBIVENT [Suspect]
     Indication: BRONCHITIS
     Dosage: 8 PUF
     Route: 055
     Dates: start: 20110127, end: 20110128
  7. ENABLEX [Concomitant]
     Indication: BLADDER DISORDER
  8. ENABLEX [Concomitant]
     Indication: PROSTATIC DISORDER
     Dosage: 15 MG
     Route: 048

REACTIONS (1)
  - OROPHARYNGEAL PAIN [None]
